FAERS Safety Report 8376502-2 (Version None)
Quarter: 2012Q1

REPORT INFORMATION
  Report Type: 
  Country: None (occurrence: None)
  Receive Date: 20120323
  Receipt Date: 20110805
  Transmission Date: 20120608
  Serious: Yes (Other)
  Sender: FDA-Public Use
  Company Number: 163-21880-11081019

PATIENT
  Sex: Female

DRUGS (4)
  1. COUMADIN [Concomitant]
  2. DEXAMETHASONE [Concomitant]
  3. REVLIMID [Suspect]
     Indication: MULTIPLE MYELOMA
     Dosage: 15 MG, 1 IN 1 D, PO
     Route: 048
     Dates: start: 20110701
  4. REVLIMID [Suspect]

REACTIONS (4)
  - ASTHENIA [None]
  - PLATELET COUNT INCREASED [None]
  - DEEP VEIN THROMBOSIS [None]
  - CHILLS [None]
